FAERS Safety Report 14485584 (Version 1)
Quarter: 2018Q1

REPORT INFORMATION
  Report Type: Spontaneous
  Country: US (occurrence: US)
  Receive Date: 20180202
  Receipt Date: 20180202
  Transmission Date: 20180509
  Serious: Yes (Hospitalization)
  Sender: FDA-Public Use
  Company Number: None

PATIENT
  Sex: Female

DRUGS (1)
  1. SOMATULINE DEPOT [Suspect]
     Active Substance: LANREOTIDE ACETATE
     Indication: CARCINOID SYNDROME
     Dosage: ROUTE - DEEP SUBCUTANEOUSLY?FREQUENCY - EVERY 4 WEEKS
     Route: 058
     Dates: start: 20170313

REACTIONS (2)
  - Gastrointestinal obstruction [None]
  - Injection site pain [None]
